FAERS Safety Report 7655249-1 (Version None)
Quarter: 2011Q3

REPORT INFORMATION
  Report Type: 
  Country: None (occurrence: None)
  Receive Date: 20110729
  Receipt Date: 20110719
  Transmission Date: 20111222
  Serious: Yes (Other)
  Sender: FDA-Public Use
  Company Number: 2011SP033846

PATIENT
  Age: 47 Year
  Sex: Female
  Weight: 69 kg

DRUGS (3)
  1. RIBAVIRIN [Suspect]
     Indication: HEPATITIS C
     Dosage: 1200 MG, QD, PO
     Route: 048
     Dates: start: 20101029
  2. PEGINTERFERON ALFA-2B [Suspect]
     Indication: HEPATITIS C
     Dosage: 120 MCG, QW, SC
     Route: 058
     Dates: start: 20101029
  3. DESSICATED THYROID MEDICATION [Concomitant]

REACTIONS (1)
  - PULMONARY EMBOLISM [None]
